FAERS Safety Report 19392738 (Version 3)
Quarter: 2022Q1

REPORT INFORMATION
  Report Type: Report from Study
  Country: JP (occurrence: JP)
  Receive Date: 20210609
  Receipt Date: 20220317
  Transmission Date: 20220423
  Serious: Yes (Other)
  Sender: FDA-Public Use
  Company Number: NVSJ2021JP008078

PATIENT
  Age: 9 Year
  Sex: Female
  Weight: 23.6 kg

DRUGS (13)
  1. ILARIS [Suspect]
     Active Substance: CANAKINUMAB
     Indication: Tumour necrosis factor receptor-associated periodic syndrome
     Dosage: 40 MG
     Route: 058
     Dates: start: 20170809
  2. ILARIS [Suspect]
     Active Substance: CANAKINUMAB
     Dosage: 40 MG
     Route: 058
     Dates: start: 20171006
  3. ILARIS [Suspect]
     Active Substance: CANAKINUMAB
     Dosage: 40 MG
     Route: 058
     Dates: start: 20171206
  4. ILARIS [Suspect]
     Active Substance: CANAKINUMAB
     Dosage: 45 MG
     Route: 058
     Dates: start: 20180129
  5. ILARIS [Suspect]
     Active Substance: CANAKINUMAB
     Dosage: 45 MG
     Route: 058
     Dates: start: 20180403
  6. ILARIS [Suspect]
     Active Substance: CANAKINUMAB
     Dosage: 45 MG
     Route: 058
     Dates: start: 20180529
  7. ILARIS [Suspect]
     Active Substance: CANAKINUMAB
     Dosage: 45 MG
     Route: 058
     Dates: start: 20180724
  8. ILARIS [Suspect]
     Active Substance: CANAKINUMAB
     Dosage: 45 MG
     Route: 058
     Dates: start: 20180918
  9. ILARIS [Suspect]
     Active Substance: CANAKINUMAB
     Dosage: 45 MG
     Route: 058
     Dates: start: 20181113
  10. ILARIS [Suspect]
     Active Substance: CANAKINUMAB
     Dosage: 45 MG
     Route: 058
     Dates: start: 20190108
  11. ILARIS [Suspect]
     Active Substance: CANAKINUMAB
     Dosage: 45 MG
     Route: 058
     Dates: start: 20190312
  12. ILARIS [Suspect]
     Active Substance: CANAKINUMAB
     Dosage: 45 MG
     Route: 058
     Dates: start: 20190507
  13. ILARIS [Suspect]
     Active Substance: CANAKINUMAB
     Dosage: 45 MG
     Route: 058
     Dates: start: 20190701

REACTIONS (3)
  - Pneumonia [Recovered/Resolved]
  - Pyrexia [Recovered/Resolved]
  - Cough [Unknown]

NARRATIVE: CASE EVENT DATE: 20190303
